FAERS Safety Report 22175745 (Version 1)
Quarter: 2023Q2

REPORT INFORMATION
  Report Type: Spontaneous
  Country: US (occurrence: None)
  Receive Date: 20230404
  Receipt Date: 20230404
  Transmission Date: 20230722
  Serious: Yes (Hospitalization)
  Sender: FDA-Public Use
  Company Number: None

PATIENT
  Age: 18 Year
  Sex: Female
  Weight: 93.1 kg

DRUGS (4)
  1. ASPARLAS [Suspect]
     Active Substance: CALASPARGASE PEGOL-MKNL
     Indication: Acute lymphocytic leukaemia
     Dosage: 3750 UI INTRNATIONAL UNIT(S)  ONCE INTRAVENOUS DRIP?
     Route: 041
     Dates: start: 20230313, end: 20230313
  2. VINCRISTINE [Suspect]
     Active Substance: VINCRISTINE
     Indication: Acute lymphocytic leukaemia
     Dosage: 2 MG WEEKLY INTRAVENOUS DRIP
     Route: 041
     Dates: start: 20230310, end: 20230317
  3. DAUNORUBICIN [Concomitant]
     Active Substance: DAUNORUBICIN
     Dates: start: 20230310, end: 20230317
  4. PREDNISONE [Concomitant]
     Active Substance: PREDNISONE
     Dates: start: 20230310

REACTIONS (5)
  - Pancreatitis acute [None]
  - Hepatic function abnormal [None]
  - Infection [None]
  - Hepatic steatosis [None]
  - Hypophagia [None]

NARRATIVE: CASE EVENT DATE: 20230320
